FAERS Safety Report 9996484 (Version 2)
Quarter: 2014Q1

REPORT INFORMATION
  Report Type: Report from Study
  Country: DE (occurrence: DE)
  Receive Date: 20140311
  Receipt Date: 20140311
  Transmission Date: 20141002
  Serious: Yes (Other)
  Sender: FDA-Public Use
  Company Number: DE-TEVA-454967GER

PATIENT
  Age: 39 Year
  Sex: Male
  Weight: 86 kg

DRUGS (1)
  1. COPAXONE [Suspect]
     Indication: MULTIPLE SCLEROSIS
     Dates: start: 20131115

REACTIONS (1)
  - Road traffic accident [Recovered/Resolved]
